FAERS Safety Report 6671191-7 (Version None)
Quarter: 2010Q2

REPORT INFORMATION
  Report Type: 
  Country: None (occurrence: None)
  Receive Date: 20100407
  Receipt Date: 20100402
  Transmission Date: 20101027
  Serious: Yes (Death, Other)
  Sender: FDA-Public Use
  Company Number: TR-ELI_LILLY_AND_COMPANY-TR201003004305

PATIENT
  Sex: Female

DRUGS (3)
  1. HUMULIN N [Suspect]
     Indication: DIABETES MELLITUS
     Dosage: 36 U, EACH MORNING
     Route: 065
     Dates: end: 20090530
  2. HUMULIN N [Suspect]
     Dosage: 16 U, EACH EVENING
     Route: 065
     Dates: end: 20090530
  3. NIDILAT [Concomitant]
     Indication: HYPERTENSION
     Dosage: UNK, 2/D
     Route: 065
     Dates: end: 20090401

REACTIONS (3)
  - HEPATIC FAILURE [None]
  - PANCREATIC CARCINOMA [None]
  - RENAL FAILURE [None]
